FAERS Safety Report 4449575-7 (Version None)
Quarter: 2004Q3

REPORT INFORMATION
  Report Type: 
  Country: None (occurrence: None)
  Receive Date: 20040913
  Receipt Date: 20040901
  Transmission Date: 20050211
  Serious: Yes (Life-Threatening)
  Sender: FDA-Public Use
  Company Number: 6010245F

PATIENT
  Age: 45 Year
  Sex: Female

DRUGS (1)
  1. NIASPAN [Suspect]
     Indication: HYPERLIPIDAEMIA
     Dosage: 375 MG PO
     Route: 048
     Dates: start: 20040702, end: 20040703

REACTIONS (6)
  - CHILLS [None]
  - DIZZINESS [None]
  - FLUSHING [None]
  - HYPOGLYCAEMIA [None]
  - MUSCLE TWITCHING [None]
  - TREMOR [None]
